FAERS Safety Report 16552801 (Version 2)
Quarter: 2019Q3

REPORT INFORMATION
  Report Type: Spontaneous
  Country: US (occurrence: US)
  Receive Date: 20190710
  Receipt Date: 20190715
  Transmission Date: 20191004
  Serious: No
  Sender: FDA-Public Use
  Company Number: US-PFIZER INC-2019292056

PATIENT
  Age: 26 Year
  Sex: Male

DRUGS (3)
  1. GENOTROPIN [Suspect]
     Active Substance: SOMATROPIN
     Indication: HYPOPITUITARISM
     Dosage: 2.8, IN HIS THIGH OR ARM
  2. GENOTROPIN [Suspect]
     Active Substance: SOMATROPIN
     Indication: BLOOD GROWTH HORMONE
     Dosage: 2.8 MG, DAILY
  3. PREDNISONE. [Concomitant]
     Active Substance: PREDNISONE
     Indication: HYPOPITUITARISM
     Dosage: 4 MG, DAILY (3 MG IN MORNING 1 MG IN EVENING)

REACTIONS (5)
  - Product dose omission [Unknown]
  - Blood alkaline phosphatase increased [Unknown]
  - Lethargy [Recovered/Resolved]
  - Device issue [Unknown]
  - Malaise [Unknown]
